FAERS Safety Report 5956311-1 (Version None)
Quarter: 2008Q4

REPORT INFORMATION
  Report Type: 
  Country: None (occurrence: None)
  Receive Date: 20081118
  Receipt Date: 20081104
  Transmission Date: 20090506
  Serious: Yes (Disabling, Other)
  Sender: FDA-Public Use
  Company Number: PHHY2008JP12887

PATIENT
  Age: 26 Year
  Sex: Female

DRUGS (10)
  1. NEORAL [Suspect]
     Indication: APLASTIC ANAEMIA
     Dosage: 5 MG/KG PER DAY
     Route: 048
     Dates: start: 20070501
  2. NEORAL [Suspect]
     Indication: CORD BLOOD TRANSPLANT THERAPY
     Dosage: 5 MG/KG/DAY
     Route: 048
     Dates: end: 20081024
  3. MYCOPHENOLATE MOFETIL [Concomitant]
     Indication: CORD BLOOD TRANSPLANT THERAPY
  4. MELPHALAN [Concomitant]
     Indication: CORD BLOOD TRANSPLANT THERAPY
     Dosage: 50 MG
  5. FLUDARABINE PHOSPHATE [Concomitant]
     Indication: CORD BLOOD TRANSPLANT THERAPY
     Dosage: 150 MG/M2 PER DAY
  6. FLUDARABINE PHOSPHATE [Concomitant]
     Dosage: 90 MG/M2 PER DAY
  7. CYCLOPHOSPHAMIDE [Concomitant]
     Indication: CORD BLOOD TRANSPLANT THERAPY
     Dosage: 120 MG/KG/DAY
  8. CYCLOPHOSPHAMIDE [Concomitant]
     Dosage: 120 MG/KG/D
  9. IRRADIATION [Concomitant]
     Dosage: 2 GY
  10. IRRADIATION [Concomitant]
     Dosage: 4 GY

REACTIONS (5)
  - DRUG INEFFECTIVE [None]
  - PLATELET COUNT DECREASED [None]
  - RETINAL HAEMORRHAGE [None]
  - TRANSPLANT FAILURE [None]
  - VISUAL ACUITY REDUCED [None]
